FAERS Safety Report 8030889-9 (Version None)
Quarter: 2012Q1

REPORT INFORMATION
  Report Type: 
  Country: None (occurrence: None)
  Receive Date: 20120105
  Receipt Date: 20111221
  Transmission Date: 20120608
  Serious: Yes (Death)
  Sender: FDA-Public Use
  Company Number: 2011-561

PATIENT
  Age: 85 Year
  Sex: Male

DRUGS (7)
  1. FAZACLO ODT [Suspect]
     Dosage: 225 MG, QD, ORAL
     Route: 048
     Dates: start: 20100604, end: 20111207
  2. TYLENOL PM (DIPHENHYDRAMINE HYDROCHLORIDE, PARACETAMOL) [Concomitant]
  3. TERAZOSIN HCL [Concomitant]
  4. OMEPRAZOLE [Concomitant]
  5. OXYBUTYNIN [Concomitant]
  6. ATIVAN [Concomitant]
  7. IMDUR [Concomitant]

REACTIONS (1)
  - DEATH [None]
